FAERS Safety Report 5931476-6 (Version None)
Quarter: 2008Q4

REPORT INFORMATION
  Report Type: 
  Country: None (occurrence: None)
  Receive Date: 20081027
  Receipt Date: 20081016
  Transmission Date: 20090506
  Serious: Yes (Other)
  Sender: FDA-Public Use
  Company Number: FR-JNJFOC-20080902665

PATIENT
  Age: 48 Year
  Sex: Male
  Weight: 67 kg

DRUGS (6)
  1. REMICADE [Suspect]
     Indication: ANKYLOSING SPONDYLITIS
     Dosage: 30 INFUSIONS
     Route: 042
  2. METHOTREXATE [Concomitant]
     Indication: ANKYLOSING SPONDYLITIS
  3. SALAZOPYRINE [Concomitant]
     Indication: ANKYLOSING SPONDYLITIS
  4. CHRONOINDOCID [Concomitant]
     Indication: ANKYLOSING SPONDYLITIS
  5. CORTANCYL [Concomitant]
     Indication: ANKYLOSING SPONDYLITIS
  6. DOLIPRANE [Concomitant]
     Indication: ANKYLOSING SPONDYLITIS

REACTIONS (1)
  - LICHEN PLANUS [None]
